FAERS Safety Report 20592980 (Version 10)
Quarter: 2024Q2

REPORT INFORMATION
  Report Type: Report from Study
  Country: US (occurrence: US)
  Receive Date: 20220315
  Receipt Date: 20240415
  Transmission Date: 20240715
  Serious: Yes (Other)
  Sender: FDA-Public Use
  Company Number: US-AUROBINDO-AUR-APL-2021-046458

PATIENT
  Sex: Male
  Weight: 115.2 kg

DRUGS (15)
  1. BELINOSTAT [Suspect]
     Active Substance: BELINOSTAT
     Indication: Chondrosarcoma metastatic
     Dosage: 11850 UNK
     Route: 065
  2. BELINOSTAT [Suspect]
     Active Substance: BELINOSTAT
     Dosage: 12500 UNK
     Route: 065
     Dates: start: 20211018
  3. BELINOSTAT [Suspect]
     Active Substance: BELINOSTAT
     Dosage: 12500 DOSAGE FORM
     Route: 065
     Dates: start: 20211115
  4. BELINOSTAT [Suspect]
     Active Substance: BELINOSTAT
     Dosage: 11850 DOSAGE FORM
     Route: 065
     Dates: start: 20211213
  5. BELINOSTAT [Suspect]
     Active Substance: BELINOSTAT
     Dosage: 11850 UNK
     Route: 065
     Dates: start: 20220110
  6. BELINOSTAT [Suspect]
     Active Substance: BELINOSTAT
     Dosage: 11850 DOSAGE FORM
     Route: 065
     Dates: start: 20220207
  7. BELINOSTAT [Suspect]
     Active Substance: BELINOSTAT
     Dosage: 11850 UNK
     Route: 065
     Dates: start: 20220307
  8. GUADECITABINE [Suspect]
     Active Substance: GUADECITABINE
     Indication: Chondrosarcoma metastatic
     Dosage: 5 DOSAGE FORM
     Route: 065
  9. GUADECITABINE [Suspect]
     Active Substance: GUADECITABINE
     Dosage: 5 DOSAGE FORM
     Route: 065
     Dates: start: 20211018
  10. GUADECITABINE [Suspect]
     Active Substance: GUADECITABINE
     Dosage: 5 DOSAGE FORM
     Route: 065
     Dates: start: 20211115
  11. GUADECITABINE [Suspect]
     Active Substance: GUADECITABINE
     Dosage: 5 DOSAGE FORM
     Dates: start: 20211213
  12. GUADECITABINE [Suspect]
     Active Substance: GUADECITABINE
     Dosage: 5 DOSAGE FORM
     Route: 065
     Dates: start: 20220110
  13. GUADECITABINE [Suspect]
     Active Substance: GUADECITABINE
     Dosage: 5 DOSAGE FORM
     Route: 065
     Dates: start: 20220207
  14. GUADECITABINE [Suspect]
     Active Substance: GUADECITABINE
     Dosage: 5 DOSAGE FORM
     Route: 065
     Dates: start: 20220307
  15. PEGFILGRASTIM [Concomitant]
     Active Substance: PEGFILGRASTIM
     Indication: Product used for unknown indication
     Dosage: 6 MILLIGRAM
     Route: 065
     Dates: start: 20211022

REACTIONS (20)
  - White blood cell count decreased [Recovered/Resolved]
  - Lymphocyte count decreased [Recovered/Resolved]
  - Neutrophil count decreased [Recovered/Resolved]
  - Electrocardiogram QT prolonged [Unknown]
  - Hypokalaemia [Unknown]
  - Nausea [Unknown]
  - Dyspnoea [Unknown]
  - Fatigue [Unknown]
  - Constipation [Unknown]
  - Hyponatraemia [Unknown]
  - Injection site reaction [Unknown]
  - Platelet count decreased [Unknown]
  - Anaemia [Unknown]
  - Dyspepsia [Unknown]
  - Thrombocytosis [Unknown]
  - Weight decreased [Unknown]
  - Infusion related reaction [Unknown]
  - Peripheral sensory neuropathy [Unknown]
  - Dermatitis contact [Unknown]
  - Candida infection [Unknown]

NARRATIVE: CASE EVENT DATE: 20211018
